FAERS Safety Report 9636668 (Version 1)
Quarter: 2013Q4

REPORT INFORMATION
  Report Type: Report from Study
  Country: FR (occurrence: FR)
  Receive Date: 20131021
  Receipt Date: 20131021
  Transmission Date: 20140711
  Serious: Yes (Hospitalization)
  Sender: FDA-Public Use
  Company Number: FR-ROCHE-1290471

PATIENT
  Age: 50 Year
  Sex: Male

DRUGS (10)
  1. RITUXIMAB [Suspect]
     Indication: BURKITT^S LYMPHOMA
     Route: 042
     Dates: start: 20100809, end: 20100809
  2. RITUXIMAB [Suspect]
     Route: 042
     Dates: start: 20100815, end: 20100815
  3. RITUXIMAB [Suspect]
     Route: 042
     Dates: start: 20100722, end: 20100722
  4. RITUXIMAB [Suspect]
     Route: 042
     Dates: start: 20100728, end: 20100728
  5. DOXORUBICINE [Suspect]
     Indication: BURKITT^S LYMPHOMA
     Route: 042
     Dates: start: 20100724, end: 20100724
  6. DOXORUBICINE [Suspect]
     Route: 042
     Dates: start: 20100811, end: 20100811
  7. ENDOXAN [Suspect]
     Indication: BURKITT^S LYMPHOMA
     Route: 042
     Dates: start: 20100811, end: 20100813
  8. ENDOXAN [Suspect]
     Route: 042
  9. METHOTREXATE [Suspect]
     Indication: BURKITT^S LYMPHOMA
     Route: 042
     Dates: start: 20100810, end: 20100810
  10. VINCRISTINE [Suspect]
     Indication: BURKITT^S LYMPHOMA
     Route: 042
     Dates: start: 20100810, end: 20100810

REACTIONS (1)
  - Febrile bone marrow aplasia [Recovered/Resolved]
